FAERS Safety Report 13912205 (Version 1)
Quarter: 2017Q3

REPORT INFORMATION
  Report Type: Spontaneous
  Country: US (occurrence: US)
  Receive Date: 20170828
  Receipt Date: 20170828
  Transmission Date: 20171127
  Serious: No
  Sender: FDA-Public Use
  Company Number: US-ROCHE-1168887

PATIENT
  Age: 8 Year
  Sex: Male

DRUGS (1)
  1. NUTROPIN AQ [Suspect]
     Active Substance: SOMATROPIN
     Indication: PRODUCT USED FOR UNKNOWN INDICATION
     Route: 058
     Dates: start: 20121001

REACTIONS (2)
  - Injection site haemorrhage [Recovering/Resolving]
  - Immediate post-injection reaction [Recovering/Resolving]

NARRATIVE: CASE EVENT DATE: 20121212
